FAERS Safety Report 21075122 (Version 1)
Quarter: 2022Q3

REPORT INFORMATION
  Report Type: Spontaneous
  Country: CA (occurrence: CA)
  Receive Date: 20220713
  Receipt Date: 20220713
  Transmission Date: 20221027
  Serious: Yes (Other)
  Sender: FDA-Public Use
  Company Number: None

PATIENT
  Age: 73 Year
  Sex: Female

DRUGS (1)
  1. METHOTREXATE [Suspect]
     Active Substance: METHOTREXATE
     Indication: Product used for unknown indication
     Route: 065

REACTIONS (7)
  - Arthropathy [Unknown]
  - Bone disorder [Unknown]
  - Gallbladder disorder [Unknown]
  - Insomnia [Unknown]
  - Liver injury [Unknown]
  - Musculoskeletal stiffness [Unknown]
  - Pain [Unknown]
